FAERS Safety Report 9973247 (Version 2)
Quarter: 2014Q1

REPORT INFORMATION
  Report Type: Report from Study
  Country: US (occurrence: US)
  Receive Date: 20140306
  Receipt Date: 20140306
  Transmission Date: 20141002
  Serious: Yes (Hospitalization, Other)
  Sender: FDA-Public Use
  Company Number: US-ABBVIE-13P-163-1151579-00

PATIENT
  Age: 33 Year
  Sex: Female
  Weight: 54.48 kg

DRUGS (13)
  1. HUMIRA [Suspect]
     Indication: CROHN^S DISEASE
     Dosage: LOADING DOSE
     Route: 058
     Dates: start: 20121201, end: 20121201
  2. HUMIRA [Suspect]
     Route: 058
     Dates: start: 201301
  3. 6MP [Suspect]
     Indication: CROHN^S DISEASE
     Dates: start: 201301, end: 201304
  4. PENTASA [Concomitant]
     Indication: CROHN^S DISEASE
     Dates: start: 201210
  5. SYNTHROID [Concomitant]
     Indication: HYPOTHYROIDISM
  6. VITAMIN D NOS [Concomitant]
  7. PRENATAL VITAMIN [Concomitant]
  8. VALIUM [Concomitant]
     Indication: ANXIETY
  9. TRAZODONE [Concomitant]
     Indication: INSOMNIA
  10. FLEXERIL [Concomitant]
     Dosage: TWICE A DAY AS NEEDED
  11. TRAMADOL [Concomitant]
     Dosage: TWICE A DAY AS NEEDED
  12. CYMBALTA [Concomitant]
     Indication: ANTIDEPRESSANT THERAPY
  13. VIIBRYD [Concomitant]
     Indication: ANTIDEPRESSANT THERAPY

REACTIONS (28)
  - Abdominal abscess [Recovered/Resolved]
  - Crohn^s disease [Recovered/Resolved]
  - Nausea [Recovered/Resolved]
  - Vomiting [Recovered/Resolved]
  - Diarrhoea [Recovered/Resolved]
  - Abdominal pain [Recovered/Resolved]
  - Pyrexia [Recovered/Resolved]
  - Neutropenia [Recovered/Resolved]
  - Urinary tract infection [Recovering/Resolving]
  - Pyrexia [Recovered/Resolved]
  - Diarrhoea [Recovered/Resolved]
  - Vomiting [Recovered/Resolved]
  - Nausea [Recovered/Resolved]
  - Perirectal abscess [Recovered/Resolved]
  - Tenderness [Recovered/Resolved]
  - Erythema [Recovered/Resolved]
  - Intestinal perforation [Not Recovered/Not Resolved]
  - Streptococcal infection [Recovered/Resolved]
  - Dandruff [Not Recovered/Not Resolved]
  - Alopecia [Not Recovered/Not Resolved]
  - Skin burning sensation [Not Recovered/Not Resolved]
  - Blister [Not Recovered/Not Resolved]
  - Dry skin [Not Recovered/Not Resolved]
  - Heart rate increased [Unknown]
  - Psoriasis [Unknown]
  - Abdominal pain [Unknown]
  - Abdominal distension [Unknown]
  - Dysmenorrhoea [Unknown]
